FAERS Safety Report 9018395 (Version 1)
Quarter: 2013Q1

REPORT INFORMATION
  Report Type: Spontaneous
  Country: US (occurrence: None)
  Receive Date: 20130111
  Receipt Date: 20130111
  Transmission Date: 20140127
  Serious: Yes (Hospitalization)
  Sender: FDA-Public Use
  Company Number: None

PATIENT
  Age: 70 Year
  Sex: Male
  Weight: 86.2 kg

DRUGS (12)
  1. COUMADIN [Suspect]
     Indication: DEEP VEIN THROMBOSIS
     Route: 048
  2. PERCOCET [Concomitant]
  3. LOSARTAN [Concomitant]
  4. OMEPRAZOLE [Concomitant]
  5. ATIVAN [Concomitant]
  6. FENOFIBRATE [Concomitant]
  7. LASIX [Concomitant]
  8. WELLBUTRIN [Concomitant]
  9. SIMVASTATIN [Concomitant]
  10. CHLORHEXIDINE [Concomitant]
  11. CA CARB [Concomitant]
  12. NEURONTIN [Concomitant]

REACTIONS (5)
  - Subdural haematoma [None]
  - International normalised ratio increased [None]
  - Blood urea increased [None]
  - Blood creatinine increased [None]
  - Partial seizures [None]
